FAERS Safety Report 5906692-X (Version None)
Quarter: 2008Q3

REPORT INFORMATION
  Report Type: 
  Country: None (occurrence: None)
  Receive Date: 20080930
  Receipt Date: 20080915
  Transmission Date: 20090109
  Serious: Yes (Hospitalization)
  Sender: FDA-Public Use
  Company Number: DSA_32434_2008

PATIENT
  Age: 73 Year
  Sex: Male

DRUGS (13)
  1. ENALAPRIL MALEATE [Suspect]
     Indication: DRUG USE FOR UNKNOWN INDICATION
     Dosage: 2.5 MG QD ORAL
     Route: 048
     Dates: start: 20080228, end: 20080314
  2. ACETAMINOPHEN [Concomitant]
  3. AMOXICILLIN + CLAVULANATE POTASSIUM [Concomitant]
  4. CARBIMAZOLE [Concomitant]
  5. CYANOCOBALAMIN [Concomitant]
  6. DIGOXIN [Concomitant]
  7. DOMPERIDONE [Concomitant]
  8. ESOMEPRAZOLE MAGNESIUM [Concomitant]
  9. FLUINDIONE [Concomitant]
  10. FUROSEMIDE [Concomitant]
  11. IRBESARTAN [Concomitant]
  12. MONTELUKAST SODIUM [Concomitant]
  13. PREDNISOLONE SODIUM SULFORENZOATE [Concomitant]

REACTIONS (3)
  - LOSS OF CONSCIOUSNESS [None]
  - LUNG DISORDER [None]
  - ORTHOSTATIC HYPOTENSION [None]
